FAERS Safety Report 11990432 (Version 1)
Quarter: 2016Q1

REPORT INFORMATION
  Report Type: Spontaneous
  Country: US (occurrence: US)
  Receive Date: 20160202
  Receipt Date: 20160202
  Transmission Date: 20160526
  Serious: No
  Sender: FDA-Public Use
  Company Number: US-PFIZER INC-2016053656

PATIENT
  Age: 56 Year
  Sex: Male

DRUGS (22)
  1. LYRICA [Suspect]
     Active Substance: PREGABALIN
     Dosage: 150 MG, 3X/DAY
     Route: 048
     Dates: start: 20120919
  2. LANTUS SOLOSTAR [Concomitant]
     Active Substance: INSULIN GLARGINE
     Dosage: 35 IU, UNK(EVERY MORNING DECREASE BY 5 UNITS FOR ANY BS{ 90)
     Route: 058
  3. PRAVACHOL [Concomitant]
     Active Substance: PRAVASTATIN SODIUM
     Dosage: 40 MG, 1X/DAY(AT BEDTIME)
     Route: 048
  4. VIAGRA [Concomitant]
     Active Substance: SILDENAFIL CITRATE
     Dosage: 100 MG, AS NEEDED
     Route: 048
     Dates: start: 20160115
  5. PROVENTIL [Concomitant]
     Active Substance: ALBUTEROL
     Indication: WHEEZING
     Dosage: UNK, AS NEEDED (INHALE 1 AMPULE VIA NEBULIZER EVERY 6R HOURS)
     Route: 045
     Dates: start: 20151231
  6. COZAAR [Concomitant]
     Active Substance: LOSARTAN POTASSIUM
     Dosage: 50 MG, DAILY
     Route: 048
     Dates: start: 20131127
  7. NOVOLOG [Concomitant]
     Active Substance: INSULIN ASPART
     Dosage: 15 IU, 3X/DAY((WITH MEALS)
     Route: 058
  8. COMBIVENT RESPIMAT [Concomitant]
     Active Substance: ALBUTEROL SULFATE\IPRATROPIUM BROMIDE
     Indication: WHEEZING
     Dosage: 2 DF, AS NEEDED(IPRATROPIUM BROMIDE-20, SALBUTAMOL SULFATE-100MCG/ACT) 4 TIMES DAILY
     Route: 045
  9. EMLA [Concomitant]
     Active Substance: LIDOCAINE\PRILOCAINE
     Dosage: UNK, AS NEEDED (LIDOCAINE-2.5 PRILOCAINE-2.5%)BOTH FEET EVER 4 HOURS
     Dates: start: 20141020
  10. PRILOSEC [Concomitant]
     Active Substance: OMEPRAZOLE MAGNESIUM
     Dosage: 20 MG, 1X/DAY(EVERY MORNING)
     Route: 048
  11. AUGMENTIN [Concomitant]
     Active Substance: AMOXICILLIN\CLAVULANATE POTASSIUM
     Dosage: 1 DF, 2X/DAY(AMOXICILLIN-875, CLAVULANIC ACID-125MG)
     Route: 048
     Dates: start: 20151231
  12. CITRACAL + D [Concomitant]
     Active Substance: CALCIUM CITRATE\VITAMIN D
     Dosage: UNK, 2X/DAY( CALCIUM CITRATE-500, ERGOCALCIFEROL-500 UNIT)
     Route: 048
     Dates: start: 20150610
  13. ZYRTEC [Concomitant]
     Active Substance: CETIRIZINE HYDROCHLORIDE
     Dosage: 10 MG, AS NEEDED
     Route: 048
  14. FLONASE [Concomitant]
     Active Substance: FLUTICASONE PROPIONATE
     Dosage: 50 UNK, DAILY(INSTILL 1 SPRAY INTO EACH NOSTRIL )
     Route: 045
  15. XALATAN [Suspect]
     Active Substance: LATANOPROST
     Dosage: UNK, 2X/DAY(PLACE DROP INTO BOTH EYES )
     Route: 031
     Dates: start: 20140804
  16. ALPHAGAN P [Concomitant]
     Active Substance: BRIMONIDINE TARTRATE
     Dosage: 1 GTT, 2X/DAY
     Route: 047
  17. LASIX [Concomitant]
     Active Substance: FUROSEMIDE
     Indication: SWELLING
     Dosage: 40 MG, AS NEEDED
     Route: 048
  18. LOPRESSOR [Concomitant]
     Active Substance: METOPROLOL TARTRATE
     Dosage: 50 MG, 2X/DAY
     Route: 048
  19. PROVENTIL [Concomitant]
     Active Substance: ALBUTEROL
     Indication: DYSPNOEA
  20. VITAMIN B12 [Concomitant]
     Active Substance: CYANOCOBALAMIN
     Dosage: 500 UG, DAILY(PLACE 1 TABLET UNDER TONGUE )
     Route: 060
     Dates: start: 20150610
  21. LYRICA [Suspect]
     Active Substance: PREGABALIN
     Dosage: 150 MG, 3X/DAY
     Route: 048
     Dates: start: 20160115
  22. SENOKOT-S [Concomitant]
     Active Substance: DOCUSATE SODIUM\SENNOSIDES
     Dosage: UNK MG, UNK(DOCUSATE SODIUM-8.6, SENNA ALEXANDRINA-50MG)
     Dates: start: 20140602, end: 20150912

REACTIONS (3)
  - Swelling [Unknown]
  - Wheezing [Unknown]
  - Dyspnoea [Unknown]
